FAERS Safety Report 11345253 (Version 1)
Quarter: 2015Q3

REPORT INFORMATION
  Report Type: Spontaneous
  Country: US (occurrence: None)
  Receive Date: 20150805
  Receipt Date: 20150805
  Transmission Date: 20151125
  Serious: Yes (Hospitalization)
  Sender: FDA-Public Use
  Company Number: None

PATIENT
  Age: 77 Year
  Sex: Male
  Weight: 89.3 kg

DRUGS (1)
  1. APIXABAN [Suspect]
     Active Substance: APIXABAN
     Indication: ATRIAL FIBRILLATION
     Route: 048
     Dates: start: 20150519, end: 20150629

REACTIONS (4)
  - Barrett^s oesophagus [None]
  - Haematochezia [None]
  - Gastrointestinal haemorrhage [None]
  - Polyp [None]

NARRATIVE: CASE EVENT DATE: 20150618
